FAERS Safety Report 5988883-5 (Version None)
Quarter: 2008Q4

REPORT INFORMATION
  Report Type: 
  Country: None (occurrence: None)
  Receive Date: 20081208
  Receipt Date: 20081208
  Transmission Date: 20090506
  Serious: Yes (Hospitalization)
  Sender: FDA-Public Use
  Company Number: None

PATIENT
  Sex: Male
  Weight: 45 kg

DRUGS (2)
  1. SERTRALINE [Suspect]
     Indication: DEPRESSION
     Dosage: 100 MG
     Dates: start: 20080126, end: 20080531
  2. SERTRALINE [Suspect]
     Indication: DEPRESSION
     Dosage: 100 MG
     Dates: start: 20080815, end: 20080822

REACTIONS (4)
  - INCORRECT DOSE ADMINISTERED [None]
  - INTENTIONAL DRUG MISUSE [None]
  - PARTNER STRESS [None]
  - TREATMENT NONCOMPLIANCE [None]
